FAERS Safety Report 13997962 (Version 1)
Quarter: 2017Q3

REPORT INFORMATION
  Report Type: Spontaneous
  Country: US (occurrence: US)
  Receive Date: 20170921
  Receipt Date: 20170921
  Transmission Date: 20171128
  Serious: Yes (Hospitalization)
  Sender: FDA-Public Use
  Company Number: None

PATIENT
  Age: 56 Year
  Sex: Female
  Weight: 92.25 kg

DRUGS (16)
  1. PREDNISONE. [Concomitant]
     Active Substance: PREDNISONE
  2. PIROXICAM. [Concomitant]
     Active Substance: PIROXICAM
  3. MIMVEY [Concomitant]
     Active Substance: ESTRADIOL\NORETHINDRONE ACETATE
  4. XELJANZ XR [Suspect]
     Active Substance: TOFACITINIB CITRATE
     Indication: RHEUMATOID ARTHRITIS
     Dosage: ?          QUANTITY:1 TABLET(S);?
     Route: 048
  5. TYLENOL 3 WITH CODIENE [Concomitant]
  6. DOXYCYCLINE. [Concomitant]
     Active Substance: DOXYCYCLINE
  7. FLUOXETINE [Concomitant]
     Active Substance: FLUOXETINE HYDROCHLORIDE
  8. RANITIDINE. [Concomitant]
     Active Substance: RANITIDINE
  9. BYSTOLIC [Concomitant]
     Active Substance: NEBIVOLOL HYDROCHLORIDE
  10. FLAXSEED [Concomitant]
     Active Substance: FLAX SEED
  11. CALCIUM WITH VITAMIN D [Concomitant]
     Active Substance: CALCIUM\VITAMIN D
  12. ALLOPURINOL. [Concomitant]
     Active Substance: ALLOPURINOL
  13. FOLIC ACID. [Concomitant]
     Active Substance: FOLIC ACID
  14. LASIX [Concomitant]
     Active Substance: FUROSEMIDE
  15. ARAVA [Concomitant]
     Active Substance: LEFLUNOMIDE
  16. MULTIVITAMIN [Concomitant]
     Active Substance: VITAMINS

REACTIONS (6)
  - Intestinal perforation [None]
  - Impaired work ability [None]
  - Hip fracture [None]
  - Intra-abdominal haematoma [None]
  - Stress fracture [None]
  - Gait inability [None]

NARRATIVE: CASE EVENT DATE: 20170626
